FAERS Safety Report 4938827-X (Version None)
Quarter: 2006Q1

REPORT INFORMATION
  Report Type: 
  Country: None (occurrence: None)
  Receive Date: 20060306
  Receipt Date: 20060221
  Transmission Date: 20060701
  Serious: Yes (Other)
  Sender: FDA-Public Use
  Company Number: 2006026097

PATIENT
  Age: 66 Year
  Sex: Female
  Weight: 59.4212 kg

DRUGS (1)
  1. CELEBREX [Suspect]
     Indication: OSTEOARTHRITIS
     Dosage: 100 MG (100 MG, 1 IN 1 D)

REACTIONS (6)
  - ARTHRITIS [None]
  - BALANCE DISORDER [None]
  - FALL [None]
  - PAIN [None]
  - SCIATICA [None]
  - SHOULDER PAIN [None]
